FAERS Safety Report 8802818 (Version 1)
Quarter: 2012Q4

REPORT INFORMATION
  Report Type: 
  Country: US (occurrence: US)
  Receive Date: 20120921
  Receipt Date: 20120921
  Transmission Date: 20130627
  Serious: No
  Sender: FDA-Public Use
  Company Number: US-009507513-1209USA003254

PATIENT
  Sex: Male

DRUGS (3)
  1. VICTRELIS [Suspect]
     Dosage: 800 mg, tid
     Dates: start: 201204
  2. PEGASYS [Concomitant]
     Dosage: 180MCG/0.5 ML PFS
  3. RIBAPAK [Concomitant]
     Dosage: 400/600 MG

REACTIONS (1)
  - Injection site rash [Unknown]
